FAERS Safety Report 5945921-3 (Version None)
Quarter: 2008Q4

REPORT INFORMATION
  Report Type: 
  Country: None (occurrence: None)
  Receive Date: 20081106
  Receipt Date: 20081021
  Transmission Date: 20090506
  Serious: Yes (Disabling)
  Sender: FDA-Public Use
  Company Number: 8037704

PATIENT
  Age: 33 Year
  Sex: Male
  Weight: 80 kg

DRUGS (3)
  1. XYZAL [Suspect]
     Dosage: 5 MG 1/D PO
     Route: 048
     Dates: start: 20080916, end: 20081001
  2. EURESPAL /00374601/ [Suspect]
     Dosage: 80 MG 2/D PO
     Route: 048
     Dates: start: 20080916, end: 20081002
  3. VAGOTHYL [Concomitant]

REACTIONS (11)
  - ABDOMINAL DISCOMFORT [None]
  - ABDOMINAL PAIN UPPER [None]
  - BLOOD PRESSURE INCREASED [None]
  - DRUG INTERACTION [None]
  - DYSPEPSIA [None]
  - EAR PRURITUS [None]
  - EYE PAIN [None]
  - MYALGIA [None]
  - NECK PAIN [None]
  - PRURITUS [None]
  - RASH [None]
